FAERS Safety Report 15452999 (Version 1)
Quarter: 2018Q4

REPORT INFORMATION
  Report Type: Spontaneous
  Country: ES (occurrence: ES)
  Receive Date: 20181001
  Receipt Date: 20181001
  Transmission Date: 20190204
  Serious: Yes (Other)
  Sender: FDA-Public Use
  Company Number: ES-ELI_LILLY_AND_COMPANY-ES201809009999

PATIENT
  Age: 43 Year
  Sex: Female

DRUGS (1)
  1. FORSTEO 250UG/ML [Suspect]
     Active Substance: TERIPARATIDE
     Indication: UPPER LIMB FRACTURE
     Dosage: UNK UNK, UNKNOWN
     Route: 065
     Dates: start: 201711

REACTIONS (5)
  - Off label use [Unknown]
  - Peripheral swelling [Unknown]
  - Haematotoxicity [Unknown]
  - Dizziness [Unknown]
  - Rash papular [Unknown]

NARRATIVE: CASE EVENT DATE: 201711
